FAERS Safety Report 6767432-8 (Version None)
Quarter: 2010Q2

REPORT INFORMATION
  Report Type: 
  Country: None (occurrence: None)
  Receive Date: 20100614
  Receipt Date: 20100531
  Transmission Date: 20101027
  Serious: Yes (Hospitalization, Other)
  Sender: FDA-Public Use
  Company Number: PHHY2010FR26628

PATIENT
  Sex: Female

DRUGS (6)
  1. EXFORGE [Suspect]
     Dosage: 160/10 MG
  2. PLAVIX [Concomitant]
  3. ZOCOR [Concomitant]
  4. ESIDRIX [Concomitant]
  5. VITAMIN D [Concomitant]
  6. ANALGESICS [Concomitant]

REACTIONS (15)
  - ANTINUCLEAR ANTIBODY POSITIVE [None]
  - ARTHRALGIA [None]
  - BACK PAIN [None]
  - BLOOD CREATININE INCREASED [None]
  - BLOOD GLUCOSE INCREASED [None]
  - C-REACTIVE PROTEIN INCREASED [None]
  - HYPERPARATHYROIDISM [None]
  - INFLAMMATION [None]
  - LUPUS-LIKE SYNDROME [None]
  - MUSCULOSKELETAL PAIN [None]
  - PROTEINURIA [None]
  - RED BLOOD CELL SEDIMENTATION RATE INCREASED [None]
  - RHEUMATOID FACTOR POSITIVE [None]
  - URINARY TRACT INFECTION BACTERIAL [None]
  - VITAMIN D DEFICIENCY [None]
